FAERS Safety Report 24387397 (Version 1)
Quarter: 2024Q4

REPORT INFORMATION
  Report Type: Spontaneous
  Country: ES (occurrence: ES)
  Receive Date: 20241002
  Receipt Date: 20241002
  Transmission Date: 20250115
  Serious: Yes (Other)
  Sender: CHEPLAPHARM
  Company Number: ES-ROCHE-10000008078

PATIENT
  Age: 16 Year
  Sex: Female

DRUGS (16)
  1. CAPECITABINE [Suspect]
     Active Substance: CAPECITABINE
     Indication: Adrenocortical carcinoma
  2. DOXORUBICIN [Suspect]
     Active Substance: DOXORUBICIN
     Indication: Adrenocortical carcinoma
     Dosage: ON DAY 1
     Dates: start: 201203
  3. DOXORUBICIN [Suspect]
     Active Substance: DOXORUBICIN
     Indication: Adrenocortical carcinoma
     Dosage: ON DAY 1
  4. BEVACIZUMAB [Suspect]
     Active Substance: BEVACIZUMAB
     Indication: Adrenocortical carcinoma
     Dates: start: 201301
  5. FILGRASTIM [Suspect]
     Active Substance: FILGRASTIM
     Indication: Adrenocortical carcinoma
     Dosage: 5 DAYS
  6. CISPLATIN [Suspect]
     Active Substance: CISPLATIN
     Indication: Adrenocortical carcinoma
     Dosage: ON DAY 1
     Dates: start: 201203
  7. CISPLATIN [Suspect]
     Active Substance: CISPLATIN
     Indication: Adrenocortical carcinoma
     Dosage: ON DAY 1
  8. GEMCITABINE [Suspect]
     Active Substance: GEMCITABINE
     Indication: Adrenocortical carcinoma
  9. PEGFILGRASTIM [Concomitant]
     Active Substance: PEGFILGRASTIM
     Indication: Adrenocortical carcinoma
  10. ACENOCOUMAROL [Concomitant]
     Active Substance: ACENOCOUMAROL
  11. ERYTHROPOIETIN [Concomitant]
     Active Substance: ERYTHROPOIETIN
  12. MEROPENEM [Concomitant]
     Active Substance: MEROPENEM
     Dosage: 1 G/8 H
  13. ACETAMINOPHEN [Concomitant]
     Active Substance: ACETAMINOPHEN
  14. OXYCODONE [Concomitant]
     Active Substance: OXYCODONE
  15. FENTANYL [Concomitant]
     Active Substance: FENTANYL
  16. PACLITAXEL [Concomitant]
     Active Substance: PACLITAXEL

REACTIONS (7)
  - Pancytopenia [Recovered/Resolved]
  - Cardiac ventricular thrombosis [Unknown]
  - Urinary tract infection [Unknown]
  - Gastroenteritis [Unknown]
  - Pyrexia [Unknown]
  - Leukocytosis [Unknown]
  - Off label use [Recovered/Resolved]
